FAERS Safety Report 9908167 (Version 2)
Quarter: 2014Q1

REPORT INFORMATION
  Report Type: Spontaneous
  Country: US (occurrence: None)
  Receive Date: 20140211
  Receipt Date: 20140219
  Transmission Date: 20141002
  Serious: Yes (Hospitalization, Other)
  Sender: FDA-Public Use
  Company Number: AUR-APL-2014-01354

PATIENT
  Age: 37 Year
  Sex: Female

DRUGS (8)
  1. QUETIAPINE [Suspect]
     Indication: DEPRESSION
     Route: 048
  2. QUETIAPINE [Suspect]
     Indication: OBSESSIVE-COMPULSIVE DISORDER
     Route: 048
  3. PAROXETINE (PAROXETINE) [Suspect]
     Indication: OBSESSIVE-COMPULSIVE DISORDER
     Route: 048
  4. PAROXETINE (PAROXETINE) [Suspect]
     Indication: DEPRESSION
     Route: 048
  5. FLUOXETINE (FLUOXETINE) [Suspect]
     Indication: OBSESSIVE-COMPULSIVE DISORDER
     Route: 048
  6. FLUOXETINE (FLUOXETINE) [Suspect]
     Indication: DEPRESSION
     Route: 048
  7. CLONAZEPAM (CLONAZEPAM) (CLONAZEPAM) [Suspect]
     Indication: OBSESSIVE-COMPULSIVE DISORDER
     Route: 048
  8. CLONAZEPAM (CLONAZEPAM) (CLONAZEPAM) [Suspect]
     Indication: DEPRESSION
     Route: 048

REACTIONS (16)
  - Loss of consciousness [None]
  - Intentional overdose [None]
  - Suicide attempt [None]
  - Maternal exposure during pregnancy [None]
  - Exposure via ingestion [None]
  - Fatigue [None]
  - Anxiety [None]
  - Anxiety [None]
  - Hyperglycaemia [None]
  - Pre-eclampsia [None]
  - Transaminases increased [None]
  - Hypertension [None]
  - Caesarean section [None]
  - Transverse presentation [None]
  - Depression [None]
  - Treatment noncompliance [None]
